FAERS Safety Report 8551466-7 (Version None)
Quarter: 2012Q3

REPORT INFORMATION
  Report Type: 
  Country: None (occurrence: None)
  Receive Date: 20120730
  Receipt Date: 20120724
  Transmission Date: 20120928
  Serious: Yes (Other)
  Sender: FDA-Public Use
  Company Number: JP-PFIZER INC-2012052769

PATIENT
  Age: 65 Year
  Sex: Male

DRUGS (18)
  1. SENNOSIDE A+B [Concomitant]
     Dosage: UNK
     Route: 048
  2. LIVACT [Concomitant]
     Dosage: UNK
     Route: 048
  3. CELEBREX [Suspect]
     Indication: PROPHYLAXIS
     Dosage: 100 MG, UID/QD
     Route: 048
  4. EVAMYL [Concomitant]
     Dosage: UNK
  5. DEPAKENE [Concomitant]
     Route: 048
  6. MUCODYNE [Concomitant]
     Dosage: UNK
     Route: 048
  7. LOSARTAN POTASSIUM AND HYDROCHLOROTHIAZIDE [Concomitant]
     Dosage: UNK
     Route: 048
  8. URSO 250 [Concomitant]
     Dosage: UNK
     Route: 048
  9. CELEBREX [Suspect]
     Dosage: 200 MG, DAILY
     Route: 048
  10. CLOBAZAM [Concomitant]
     Dosage: UNK
     Route: 048
  11. COLONEL [Concomitant]
     Dosage: UNK
     Route: 048
  12. GASMOTIN [Concomitant]
     Dosage: UNK
     Route: 048
  13. MUCOSTA [Concomitant]
     Dosage: UNK
     Route: 048
  14. BROTIZOLAM [Concomitant]
     Dosage: UNK
  15. FEBUXOSTAT [Concomitant]
     Dosage: UNK
     Route: 048
  16. BISOPROLOL FUMARATE [Concomitant]
     Dosage: UNK
     Route: 048
  17. RABEPRAZOLE SODIUM [Concomitant]
  18. LORAZEPAM [Concomitant]
     Dosage: UNK
     Route: 048

REACTIONS (4)
  - DYSURIA [None]
  - RENAL IMPAIRMENT [None]
  - BLOOD CREATININE INCREASED [None]
  - OFF LABEL USE [None]
